FAERS Safety Report 5478413-9 (Version None)
Quarter: 2007Q4

REPORT INFORMATION
  Report Type: 
  Country: None (occurrence: None)
  Receive Date: 20071005
  Receipt Date: 20070925
  Transmission Date: 20080405
  Serious: Yes (Hospitalization)
  Sender: FDA-Public Use
  Company Number: US-AMGEN-US197378

PATIENT
  Sex: Female

DRUGS (5)
  1. PANITUMUMAB [Suspect]
     Indication: COLORECTAL CANCER
     Route: 042
     Dates: start: 20060809
  2. BEVACIZUMAB [Suspect]
     Route: 042
  3. OXALIPLATIN [Concomitant]
     Route: 042
  4. FLUOROURACIL [Concomitant]
     Route: 042
  5. FOLINIC ACID [Concomitant]
     Route: 042

REACTIONS (3)
  - COLONIC FISTULA [None]
  - DIARRHOEA [None]
  - PYREXIA [None]
